FAERS Safety Report 8110039-0 (Version None)
Quarter: 2012Q1

REPORT INFORMATION
  Report Type: 
  Country: None (occurrence: None)
  Receive Date: 20120202
  Receipt Date: 20120104
  Transmission Date: 20120608
  Serious: Yes (Death)
  Sender: FDA-Public Use
  Company Number: US-COVIDIEN/TYCO HEALTHCARE/MALLINCKRODT-T201200082

PATIENT
  Age: 24 Year
  Sex: Male

DRUGS (7)
  1. THORAZINE [Suspect]
     Route: 048
  2. DIPHENOXYLATE HCL AND ATROPINE SULFATE [Suspect]
     Route: 048
  3. PAROXETINE [Suspect]
     Route: 048
  4. CITALOPRAM HYDROBROMIDE [Suspect]
     Route: 048
  5. PAMELOR [Suspect]
     Route: 048
  6. METRONIDAZOLE [Suspect]
     Route: 048
  7. ANTACID TAB [Suspect]
     Route: 048

REACTIONS (1)
  - COMPLETED SUICIDE [None]
